FAERS Safety Report 4455790-9 (Version None)
Quarter: 2004Q3

REPORT INFORMATION
  Report Type: 
  Country: None (occurrence: None)
  Receive Date: 20040917
  Receipt Date: 20040903
  Transmission Date: 20050211
  Serious: No
  Sender: FDA-Public Use
  Company Number: 04P-114-0272493-00

PATIENT
  Age: 38 Year
  Sex: Female

DRUGS (3)
  1. DEPAKENE [Suspect]
     Indication: EPILEPSY
     Dosage: 1000 MG, 2 IN 1 D, ORAL
     Route: 048
  2. CITALOPRAM [Suspect]
     Dosage: 20 MG, 1 IN 1 D
     Dates: start: 20040429, end: 20040705
  3. SERTRALINE HCL [Concomitant]

REACTIONS (2)
  - DRUG INTERACTION [None]
  - GRAND MAL CONVULSION [None]
